FAERS Safety Report 5541688-1 (Version None)
Quarter: 2007Q4

REPORT INFORMATION
  Report Type: 
  Country: None (occurrence: None)
  Receive Date: 20071205
  Receipt Date: 20071122
  Transmission Date: 20080405
  Serious: Yes (Disabling, Other)
  Sender: FDA-Public Use
  Company Number: 2007AL005025

PATIENT
  Age: 32 Year
  Sex: Female

DRUGS (4)
  1. CITALOPRAM HYDROBROMIDE [Suspect]
     Dosage: 20 MG;QDPO
     Route: 048
     Dates: start: 20060725, end: 20070101
  2. SERETIDE [Concomitant]
  3. CLINDAMCYIN [Concomitant]
  4. ERYTHROMYCIN [Concomitant]

REACTIONS (3)
  - BLOOD BILIRUBIN INCREASED [None]
  - MIGRAINE [None]
  - VISUAL FIELD DEFECT [None]
